FAERS Safety Report 15518012 (Version 1)
Quarter: 2018Q4

REPORT INFORMATION
  Report Type: Spontaneous
  Country: SE (occurrence: SE)
  Receive Date: 20181017
  Receipt Date: 20181017
  Transmission Date: 20190205
  Serious: Yes (Other)
  Sender: FDA-Public Use
  Company Number: SE-BAYER-2018-190674

PATIENT
  Age: 23 Year
  Sex: Female

DRUGS (1)
  1. JAYDESS [Suspect]
     Active Substance: LEVONORGESTREL
     Indication: CONTRACEPTION
     Dosage: 14 MCG/24HR, CONT
     Route: 015

REACTIONS (5)
  - Hair growth abnormal [Recovered/Resolved with Sequelae]
  - Depression [Recovered/Resolved with Sequelae]
  - Abdominal pain [Recovered/Resolved with Sequelae]
  - Suicidal ideation [Recovered/Resolved with Sequelae]
  - Acne [Recovered/Resolved with Sequelae]

NARRATIVE: CASE EVENT DATE: 2015
